FAERS Safety Report 18908612 (Version 1)
Quarter: 2021Q1

REPORT INFORMATION
  Report Type: Spontaneous
  Country: US (occurrence: US)
  Receive Date: 20210218
  Receipt Date: 20210218
  Transmission Date: 20210420
  Serious: No
  Sender: FDA-Public Use
  Company Number: US-SA-2021SA055257

PATIENT
  Sex: Female

DRUGS (1)
  1. AUBAGIO [Suspect]
     Active Substance: TERIFLUNOMIDE
     Dates: end: 20210202

REACTIONS (3)
  - Hair texture abnormal [Unknown]
  - Alopecia [Unknown]
  - Thyroid disorder [Recovered/Resolved]
